FAERS Safety Report 11323573 (Version 1)
Quarter: 2015Q3

REPORT INFORMATION
  Report Type: Spontaneous
  Country: GR (occurrence: GR)
  Receive Date: 20150730
  Receipt Date: 20150730
  Transmission Date: 20151125
  Serious: Yes (Hospitalization)
  Sender: FDA-Public Use
  Company Number: GR-NOVOPROD-457647

PATIENT
  Age: 59 Year
  Sex: Male
  Weight: 113 kg

DRUGS (6)
  1. NORVASC [Concomitant]
     Active Substance: AMLODIPINE BESYLATE
     Indication: HYPERTENSION
     Dosage: 5 MG, QD
     Route: 048
  2. LOPRESOR                           /00376902/ [Concomitant]
     Active Substance: METOPROLOL TARTRATE
     Indication: CORONARY ARTERY DISEASE
     Dosage: 100 MG, QD (A QUARTER OF A TABLET TWICE A DAY)
     Route: 048
  3. VICTOZA [Suspect]
     Active Substance: LIRAGLUTIDE
     Indication: TYPE 2 DIABETES MELLITUS
     Dosage: 0.6 MG, QD
     Route: 058
     Dates: start: 20150703
  4. LEPUR [Concomitant]
     Active Substance: SIMVASTATIN
     Indication: HYPERLIPIDAEMIA
     Dosage: 20 MG, QD
     Route: 048
  5. VICTOZA [Suspect]
     Active Substance: LIRAGLUTIDE
     Dosage: 1.2 MG, QD
     Route: 058
     Dates: start: 20150710, end: 20150710
  6. GLYCERYL TRINITRATE [Concomitant]
     Active Substance: NITROGLYCERIN
     Indication: CORONARY ARTERY DISEASE
     Dosage: 1 PATCH EVERY 24H
     Route: 062

REACTIONS (1)
  - Atrial fibrillation [Unknown]

NARRATIVE: CASE EVENT DATE: 20150711
